FAERS Safety Report 7367885-0 (Version None)
Quarter: 2011Q1

REPORT INFORMATION
  Report Type: 
  Country: None (occurrence: None)
  Receive Date: 20110322
  Receipt Date: 20110317
  Transmission Date: 20110831
  Serious: Yes (Other)
  Sender: FDA-Public Use
  Company Number: CH-ABBOTT-11P-151-0712667-00

PATIENT
  Age: 28 Year
  Sex: Female

DRUGS (2)
  1. ISOTRETINOIN [Suspect]
     Indication: ACNE
     Dates: start: 20100101, end: 20101201
  2. DEPAKENE [Suspect]
     Indication: EPILEPSY
     Route: 048

REACTIONS (1)
  - ABORTION INDUCED [None]
